FAERS Safety Report 4952906-2 (Version None)
Quarter: 2006Q1

REPORT INFORMATION
  Report Type: 
  Country: None (occurrence: None)
  Receive Date: 20060324
  Receipt Date: 20060316
  Transmission Date: 20060701
  Serious: Yes (Hospitalization)
  Sender: FDA-Public Use
  Company Number: PHBS2006HR04105

PATIENT
  Age: 53 Year
  Sex: Female
  Weight: 72 kg

DRUGS (4)
  1. LESCOL XL [Suspect]
     Indication: DYSLIPIDAEMIA
     Dosage: 80 MG/DAY
     Route: 048
     Dates: start: 20060221
  2. CONCOR COR [Concomitant]
  3. TRITACE [Concomitant]
  4. PEPTORAN [Concomitant]

REACTIONS (1)
  - CORONARY ARTERY RESTENOSIS [None]
